FAERS Safety Report 14218221 (Version 2)
Quarter: 2017Q4

REPORT INFORMATION
  Report Type: Spontaneous
  Country: US (occurrence: US)
  Receive Date: 20171123
  Receipt Date: 20171213
  Transmission Date: 20180321
  Serious: Yes (Other)
  Sender: FDA-Public Use
  Company Number: US-LUPIN (EUROPE) LIMITED-2017-06679

PATIENT
  Age: 33 Year
  Sex: Female
  Weight: 72.56 kg

DRUGS (1)
  1. NIKKI [Suspect]
     Active Substance: DROSPIRENONE\ETHINYL ESTRADIOL
     Indication: CONTRACEPTION
     Dosage: 1 DF (3 MG/0.02 MG), QD
     Route: 048
     Dates: start: 20171101, end: 20171107

REACTIONS (5)
  - Chest discomfort [Recovered/Resolved]
  - Pruritus [Recovered/Resolved]
  - Lip swelling [Recovering/Resolving]
  - Eye swelling [Recovering/Resolving]
  - Swelling face [Recovering/Resolving]

NARRATIVE: CASE EVENT DATE: 20171101
